FAERS Safety Report 16286405 (Version 2)
Quarter: 2019Q2

REPORT INFORMATION
  Report Type: Report from Study
  Country: None (occurrence: BE)
  Receive Date: 20190508
  Receipt Date: 20190525
  Transmission Date: 20190711
  Serious: Yes (Death)
  Sender: FDA-Public Use
  Company Number: BE-ABBVIE-19K-013-2773646-00

PATIENT
  Age: 32 Year
  Sex: Female
  Weight: 66.5 kg

DRUGS (35)
  1. FOLAVIT [Concomitant]
     Active Substance: FOLIC ACID
     Indication: PRODUCT USED FOR UNKNOWN INDICATION
     Route: 048
  2. OXYNORM [Concomitant]
     Active Substance: OXYCODONE HYDROCHLORIDE
     Indication: PAIN
     Dosage: UP TO 6 TIMES A DAY WHEN PAIN
     Route: 048
  3. DUROGESIC [Concomitant]
     Active Substance: FENTANYL
     Indication: PRODUCT USED FOR UNKNOWN INDICATION
     Dosage: FORM STRENGTH: 50 MICROGRAM/HOUR; UNIT DOSE: 1 PATCH
     Route: 062
  4. LYRICA [Concomitant]
     Active Substance: PREGABALIN
     Indication: PRODUCT USED FOR UNKNOWN INDICATION
     Route: 048
  5. TOULARYNX DEXTROMETHORPHAN [Concomitant]
     Indication: PRODUCT USED FOR UNKNOWN INDICATION
     Dosage: FORM STRENGTH: 7.5MG/5ML; UNIT DOSE: 10ML
     Route: 048
  6. BLOOD PLASMA [Concomitant]
     Indication: PRODUCT USED FOR UNKNOWN INDICATION
     Dosage: UNIT DOSE: 1 UNIT DURING 30 MINUTES
     Route: 042
  7. PANTOMED [Concomitant]
     Indication: PRODUCT USED FOR UNKNOWN INDICATION
     Route: 048
  8. LAXOBERON [Concomitant]
     Active Substance: SODIUM PICOSULFATE
     Indication: CONSTIPATION
     Dosage: IF CONSTIPATION, ONCE A DAY
     Route: 048
  9. HYDREA [Concomitant]
     Active Substance: HYDROXYUREA
     Indication: PRODUCT USED FOR UNKNOWN INDICATION
     Route: 048
  10. LYRICA [Concomitant]
     Active Substance: PREGABALIN
     Indication: PRODUCT USED FOR UNKNOWN INDICATION
     Dosage: FORM STRENGTH: 75MG; UNIT DOSE: 150MG ONCE A DAY AND 75MG ONCE A DAY
     Route: 048
  11. XANAX [Concomitant]
     Active Substance: ALPRAZOLAM
     Indication: ANXIETY
     Dosage: UP TO 2 TIMES A DAY WHEN ANXIOUS
     Route: 048
  12. LORMETAZEPAM EG [Concomitant]
     Indication: INSOMNIA
     Dosage: ONCE A DAY WHEN INSOMNIA
     Route: 048
  13. MOVICOL [Concomitant]
     Active Substance: POLYETHYLENE GLYCOL 3350\POTASSIUM CHLORIDE\SODIUM BICARBONATE\SODIUM CHLORIDE
     Indication: CONSTIPATION
     Dosage: UP TO 3 TIMES A DAY WHEN CONSTIPATION
     Route: 048
  14. SOLU-MEDROL [Concomitant]
     Active Substance: METHYLPREDNISOLONE SODIUM SUCCINATE
     Indication: PRODUCT USED FOR UNKNOWN INDICATION
     Dosage: FORM STRENGTH: 40MG; UNIT DOSE: 30MG DURING 15 MINUTES
     Route: 042
  15. MEROPENEM FRESENIUS [Concomitant]
     Indication: PRODUCT USED FOR UNKNOWN INDICATION
     Dosage: FORM STRENGTH: 1G; UNIT DOSE: 1G DURING 15 MINUTES
     Route: 042
  16. VANCOMYCINE MYLAN [Concomitant]
     Active Substance: VANCOMYCIN
     Indication: PRODUCT USED FOR UNKNOWN INDICATION
     Dosage: UNIT DOSE:250MG DURING 100MIN ONCE A DAY,250MG DURING 1 HOUR 2 TIMES A DAY
     Route: 042
  17. DIFLUCAN [Concomitant]
     Active Substance: FLUCONAZOLE
     Indication: PRODUCT USED FOR UNKNOWN INDICATION
     Dosage: FORM STRENGTH: 400MG/200ML; UNIT DOSE: 400MG
     Route: 042
  18. DIPHENHYDRAMINE/LIDOCAINE [Concomitant]
     Indication: PRODUCT USED FOR UNKNOWN INDICATION
     Route: 048
  19. VENCLYXTO [Suspect]
     Active Substance: VENETOCLAX
     Indication: ACUTE MYELOID LEUKAEMIA
     Route: 048
     Dates: start: 20190403, end: 20190506
  20. ZOVIRAX [Concomitant]
     Active Substance: ACYCLOVIR
     Indication: PRODUCT USED FOR UNKNOWN INDICATION
     Dosage: FORM STRENGTH: 250MG; UNIT DOSE: 325MG DURING 1 HOUR
     Route: 042
  21. PERIO-AID [Concomitant]
     Indication: PRODUCT USED FOR UNKNOWN INDICATION
     Route: 002
  22. MORPHINE HYDROCHLORIDE [Concomitant]
     Active Substance: MORPHINE HYDROCHLORIDE
     Indication: PAIN
     Dosage: UP TO 3 TIMES A DAY WHEN PAIN
     Route: 058
  23. LITICAN [Concomitant]
     Active Substance: ALIZAPRIDE HYDROCHLORIDE
     Indication: NAUSEA
     Dosage: UP TO 6 TIMES A DAY IF NAUSEA. FORM STRENGTH: 50MG/2ML; UNIT DOSE: 50MG
     Route: 042
  24. XYLOCAINE [Concomitant]
     Active Substance: LIDOCAINE HYDROCHLORIDE
     Indication: PRODUCT USED FOR UNKNOWN INDICATION
     Dosage: FORM STRENGTH: 10%; UNIT DOSE: 1 SPRAY
  25. ORGAMETRIL [Concomitant]
     Active Substance: LYNESTRENOL
     Indication: PRODUCT USED FOR UNKNOWN INDICATION
     Route: 048
  26. GLUCOSE [Concomitant]
     Active Substance: DEXTROSE
     Indication: PRODUCT USED FOR UNKNOWN INDICATION
     Route: 042
  27. BLOOD ERYTHROCYTE CONCENTRATE [Concomitant]
     Indication: PRODUCT USED FOR UNKNOWN INDICATION
     Dosage: UNIT DOSE; 1 UNIT DURING 2 HOURS
     Route: 042
  28. VANCO-LOCK [Concomitant]
     Indication: PRODUCT USED FOR UNKNOWN INDICATION
  29. TOULARYNX DEXTROMETHORPHAN [Concomitant]
     Indication: COUGH
     Dosage: 2 TIMES A DAY IF NECESSARY?FORM STRENGTH: 7.5MG/5ML; UNIT DOSE: 10ML
     Route: 048
  30. MORPHINE HYDROCHLORIDE [Concomitant]
     Active Substance: MORPHINE HYDROCHLORIDE
     Indication: PRODUCT USED FOR UNKNOWN INDICATION
  31. LITICAN [Concomitant]
     Active Substance: ALIZAPRIDE HYDROCHLORIDE
     Indication: NAUSEA
     Dosage: UP TO 3 TIMES A DAY IF NAUSEA
     Route: 048
  32. LASIX [Concomitant]
     Active Substance: FUROSEMIDE
     Indication: PRODUCT USED FOR UNKNOWN INDICATION
     Dosage: FORM STRENGTH: 20MG/2ML; UNIT DOSE: 40MG DURING 15 MINUTES
     Route: 042
  33. NOVALGIN (METAMIZOLE SODIUM) [Concomitant]
     Active Substance: METAMIZOLE SODIUM
     Indication: PYREXIA
     Dosage: FORM STRENGTH: 1G/2ML; UNIT DOSE: 0.6G?UP TO 2 TIMES A DAY WHEN FEVER
     Route: 042
  34. PARACETAMOL FRESENIUS [Concomitant]
     Indication: PAIN
     Dosage: FORM STRENGTH: 1G/100ML; UNIT DOSE: 1G, UP TO 2 TIMES A DAY WHEN PAIN
     Route: 042
  35. ISO-BETADINE [Concomitant]
     Active Substance: POVIDONE-IODINE
     Indication: PRODUCT USED FOR UNKNOWN INDICATION
     Route: 002

REACTIONS (2)
  - Acute myeloid leukaemia [Fatal]
  - Off label use [Unknown]

NARRATIVE: CASE EVENT DATE: 2019
